FAERS Safety Report 5047942-4 (Version None)
Quarter: 2006Q3

REPORT INFORMATION
  Report Type: 
  Country: None (occurrence: None)
  Receive Date: 20060703
  Receipt Date: 20060621
  Transmission Date: 20061208
  Serious: Yes (Other)
  Sender: FDA-Public Use
  Company Number: 226599

PATIENT
  Sex: Female

DRUGS (3)
  1. RITUXAN [Suspect]
     Indication: SYSTEMIC LUPUS ERYTHEMATOSUS
     Dates: start: 20060612
  2. CELLCEPT [Concomitant]
  3. PREDNISONE TAB [Concomitant]

REACTIONS (7)
  - FLUSHING [None]
  - INFUSION RELATED REACTION [None]
  - PARTIAL SEIZURES [None]
  - RASH [None]
  - RASH PRURITIC [None]
  - SWOLLEN TONGUE [None]
  - URTICARIA [None]
